FAERS Safety Report 11003371 (Version 1)
Quarter: 2015Q2

REPORT INFORMATION
  Report Type: Spontaneous
  Country: US (occurrence: None)
  Receive Date: 20150402
  Receipt Date: 20150402
  Transmission Date: 20150821
  Serious: Yes (Death)
  Sender: FDA-Public Use
  Company Number: US-2014-11809

PATIENT

DRUGS (5)
  1. TACROLIMUS. [Concomitant]
     Active Substance: TACROLIMUS
  2. PENTOSTATIN (PENTOSTATIN) (10 MILLIGRAM) [Suspect]
     Active Substance: PENTOSTATIN
     Indication: HAEMATOLOGICAL MALIGNANCY
     Route: 042
  3. URSODEOXYCHOLIC ACID (URSODEOXYCHOLIC ACID) [Concomitant]
     Active Substance: URSODIOL
  4. LORAZEPAM. [Concomitant]
     Active Substance: LORAZEPAM
  5. BUSULFEX [Suspect]
     Active Substance: BUSULFAN
     Indication: HAEMATOLOGICAL MALIGNANCY
     Route: 042

REACTIONS (3)
  - Off label use [None]
  - Drug administration error [None]
  - Multi-organ failure [None]
